FAERS Safety Report 24293013 (Version 1)
Quarter: 2024Q3

REPORT INFORMATION
  Report Type: Spontaneous
  Country: US (occurrence: None)
  Receive Date: 20240906
  Receipt Date: 20240906
  Transmission Date: 20241017
  Serious: No
  Sender: DOMPE FARMACEUTICI
  Company Number: US-FARMAPROD-202311-3379

PATIENT
  Sex: Female

DRUGS (1)
  1. OXERVATE [Suspect]
     Active Substance: CENEGERMIN-BKBJ
     Indication: Neurotrophic keratopathy
     Dosage: UNKNOWN
     Route: 047
     Dates: start: 20231107

REACTIONS (5)
  - Eye pain [Not Recovered/Not Resolved]
  - Eyelid pain [Not Recovered/Not Resolved]
  - Product dose omission issue [Unknown]
  - Photophobia [Not Recovered/Not Resolved]
  - Vital dye staining cornea present [Unknown]

NARRATIVE: CASE EVENT DATE: 20231101
